FAERS Safety Report 4617594-3 (Version None)
Quarter: 2005Q1

REPORT INFORMATION
  Report Type: 
  Country: None (occurrence: None)
  Receive Date: 20050322
  Receipt Date: 20050309
  Transmission Date: 20050727
  Serious: Yes (Death)
  Sender: FDA-Public Use
  Company Number: MK200502-0194-2

PATIENT
  Age: 25 Year
  Sex: Female

DRUGS (4)
  1. METHADOSE [Suspect]
     Indication: PAIN
  2. CITALOPRAM HYDROBROMIDE [Suspect]
  3. BUTALBITAL [Suspect]
  4. DIAZEPAM [Concomitant]

REACTIONS (2)
  - DRUG TOXICITY [None]
  - MULTIPLE DRUG OVERDOSE [None]
